FAERS Safety Report 9899440 (Version 2)
Quarter: 2014Q3

REPORT INFORMATION
  Report Type: Spontaneous
  Country: GB (occurrence: GB)
  Receive Date: 20140214
  Receipt Date: 20140716
  Transmission Date: 20150326
  Serious: Yes (Other)
  Sender: FDA-Public Use
  Company Number: GB-ABBVIE-14P-167-1200137-00

PATIENT
  Age: 52 Year
  Sex: Female

DRUGS (1)
  1. HUMIRA [Suspect]
     Active Substance: ADALIMUMAB
     Indication: PRODUCT USED FOR UNKNOWN INDICATION
     Route: 065

REACTIONS (8)
  - Rash erythematous [Unknown]
  - Cutaneous lupus erythematosus [Unknown]
  - Blister [Unknown]
  - Dry eye [Unknown]
  - Systemic lupus erythematosus [Unknown]
  - Rash [Unknown]
  - Rash generalised [Unknown]
  - Rash pruritic [Unknown]

NARRATIVE: CASE EVENT DATE: 201310
